FAERS Safety Report 5102778-0 (Version None)
Quarter: 2006Q3

REPORT INFORMATION
  Report Type: 
  Country: None (occurrence: None)
  Receive Date: 20060907
  Receipt Date: 20060823
  Transmission Date: 20061208
  Serious: Yes (Hospitalization)
  Sender: FDA-Public Use
  Company Number: 2006001341

PATIENT
  Age: 65 Year
  Sex: Female

DRUGS (3)
  1. TARCEVA [Suspect]
     Indication: NON-SMALL CELL LUNG CANCER
     Dosage: 150 MG (QD), ORAL
     Route: 048
     Dates: start: 20060419, end: 20060520
  2. VALPORATE SODIUM (ERGENYL CHRONO) (TABLET) [Suspect]
     Dosage: ORAL
     Route: 048
     Dates: start: 20041210, end: 20060519
  3. VALPORATE SODIUM (ERGENYL CHRONO) (TABLET) [Suspect]
     Dosage: ORAL
     Route: 048
     Dates: start: 20060523

REACTIONS (2)
  - CHOLESTASIS [None]
  - CYTOLYTIC HEPATITIS [None]
